FAERS Safety Report 6316302-8 (Version None)
Quarter: 2009Q3

REPORT INFORMATION
  Report Type: 
  Country: None (occurrence: None)
  Receive Date: 20090820
  Receipt Date: 20090811
  Transmission Date: 20100115
  Serious: Yes (Hospitalization)
  Sender: FDA-Public Use
  Company Number: BR-AVENTIS-200916439GDDC

PATIENT
  Sex: Female

DRUGS (4)
  1. LANTUS [Suspect]
     Route: 058
     Dates: end: 20090619
  2. LANTUS [Suspect]
     Route: 058
     Dates: start: 20090620, end: 20090601
  3. LANTUS [Suspect]
     Route: 058
     Dates: start: 20090601
  4. AUTOPEN INSULIN INJECTION PEN [Suspect]

REACTIONS (4)
  - DRUG INEFFECTIVE [None]
  - HOSPITALISATION [None]
  - HYPERGLYCAEMIA [None]
  - PRODUCT QUALITY ISSUE [None]
